FAERS Safety Report 18158272 (Version 1)
Quarter: 2020Q3

REPORT INFORMATION
  Report Type: Spontaneous
  Country: US (occurrence: US)
  Receive Date: 20200817
  Receipt Date: 20200817
  Transmission Date: 20201103
  Serious: No
  Sender: FDA-Public Use
  Company Number: US-THERAPEUTICSMD-2020TMD02849

PATIENT
  Age: 58 Year
  Sex: Female
  Weight: 48.53 kg

DRUGS (5)
  1. BIJUVA [Suspect]
     Active Substance: ESTRADIOL\PROGESTERONE
     Dosage: 1/100 MG (1 CAPSULE), 1X/DAY IN THE EVENING WITH FOOD
     Route: 048
     Dates: start: 20200628, end: 2020
  2. BIJUVA [Suspect]
     Active Substance: ESTRADIOL\PROGESTERONE
     Dosage: 2/200 MG (2 CAPSULES), 1X/DAY IN THE EVENING WITH FOOD
     Route: 048
     Dates: start: 20200625, end: 20200627
  3. BIJUVA [Suspect]
     Active Substance: ESTRADIOL\PROGESTERONE
     Dosage: 2/200 MG (2 CAPSULES), 1X/DAY IN THE EVENING WITH FOOD
     Route: 048
     Dates: start: 2020
  4. BIJUVA [Suspect]
     Active Substance: ESTRADIOL\PROGESTERONE
     Indication: HORMONE REPLACEMENT THERAPY
     Dosage: 1/100 MG (1 CAPSULE), 1X/DAY IN THE EVENING WITH FOOD
     Route: 048
     Dates: start: 20191108, end: 20200624
  5. UNSPECIFIED MEDICATIONS [Concomitant]
     Active Substance: UNSPECIFIED INGREDIENT

REACTIONS (4)
  - Night sweats [Recovering/Resolving]
  - Hypertrichosis [Not Recovered/Not Resolved]
  - Off label use [Not Recovered/Not Resolved]
  - COVID-19 [Unknown]

NARRATIVE: CASE EVENT DATE: 20191108
